FAERS Safety Report 9695901 (Version 6)
Quarter: 2014Q3

REPORT INFORMATION
  Report Type: Spontaneous
  Country: US (occurrence: US)
  Receive Date: 20131119
  Receipt Date: 20140708
  Transmission Date: 20150326
  Serious: Yes (Hospitalization, Disabling, Other)
  Sender: FDA-Public Use
  Company Number: US-009507513-1206USA04492

PATIENT
  Sex: Female
  Weight: 74.83 kg

DRUGS (2)
  1. FOSAMAX [Suspect]
     Active Substance: ALENDRONATE SODIUM
     Indication: OSTEOPOROSIS
     Dosage: 10 MG, UNK
     Route: 048
     Dates: start: 1995, end: 201011
  2. FOSAMAX [Suspect]
     Active Substance: ALENDRONATE SODIUM
     Dosage: 70 MG, QW
     Route: 048
     Dates: end: 201011

REACTIONS (27)
  - Open reduction of fracture [Unknown]
  - Elbow operation [Unknown]
  - Hypoparathyroidism [Unknown]
  - Accidental overdose [Recovering/Resolving]
  - Cystitis [Unknown]
  - Femur fracture [Not Recovered/Not Resolved]
  - Internal fixation of fracture [Unknown]
  - Fracture nonunion [Unknown]
  - Surgery [Unknown]
  - Limb injury [Unknown]
  - Limb injury [Not Recovered/Not Resolved]
  - Foot fracture [Unknown]
  - Depression [Unknown]
  - Bone pain [Unknown]
  - Femur fracture [Not Recovered/Not Resolved]
  - Internal fixation of fracture [Unknown]
  - Bone operation [Unknown]
  - Diarrhoea [Unknown]
  - Rib fracture [Unknown]
  - Blood urea increased [Unknown]
  - Headache [Unknown]
  - Dehydration [Unknown]
  - Upper limb fracture [Unknown]
  - Pain [Unknown]
  - Humerus fracture [Unknown]
  - Fall [Unknown]
  - Osteopenia [Unknown]

NARRATIVE: CASE EVENT DATE: 2000
